FAERS Safety Report 10606838 (Version 1)
Quarter: 2014Q4

REPORT INFORMATION
  Report Type: Spontaneous
  Country: US (occurrence: US)
  Receive Date: 20141125
  Receipt Date: 20141125
  Transmission Date: 20150529
  Serious: Yes (Other)
  Sender: FDA-Public Use
  Company Number: US-009507513-1411USA009872

PATIENT
  Sex: Male

DRUGS (1)
  1. JANUVIA [Suspect]
     Active Substance: SITAGLIPTIN PHOSPHATE
     Indication: DIABETES MELLITUS
     Dosage: UNK
     Route: 048
     Dates: start: 2014, end: 2014

REACTIONS (15)
  - Eye disorder [Unknown]
  - Memory impairment [Unknown]
  - Parkinson^s disease [Unknown]
  - Dyspnoea [Unknown]
  - Movement disorder [Unknown]
  - Lung neoplasm malignant [Unknown]
  - Weight decreased [Unknown]
  - Musculoskeletal chest pain [Unknown]
  - Social avoidant behaviour [Unknown]
  - Vomiting [Unknown]
  - Product name confusion [Unknown]
  - Colon cancer [Unknown]
  - Hepatic cancer [Unknown]
  - Adrenal gland cancer [Unknown]
  - Decreased appetite [Unknown]

NARRATIVE: CASE EVENT DATE: 2014
